FAERS Safety Report 13546067 (Version 1)
Quarter: 2017Q2

REPORT INFORMATION
  Report Type: Spontaneous
  Country: US (occurrence: US)
  Receive Date: 20170514
  Receipt Date: 20170514
  Transmission Date: 20170830
  Serious: Yes (Life-Threatening, Hospitalization)
  Sender: FDA-Public Use
  Company Number: None

PATIENT
  Age: 59 Year
  Sex: Female
  Weight: 90 kg

DRUGS (8)
  1. TRESIBA [Suspect]
     Active Substance: INSULIN DEGLUDEC
     Indication: DIABETES MELLITUS
     Dosage: ?          QUANTITY:1 INJECTION(S);?
     Route: 058
     Dates: start: 20150101, end: 20170514
  2. FIORICET [Concomitant]
     Active Substance: ACETAMINOPHEN\BUTALBITAL\CAFFEINE
  3. VALIUM [Concomitant]
     Active Substance: DIAZEPAM
  4. ALDACTONE [Concomitant]
     Active Substance: SPIRONOLACTONE
  5. REPATHA SURECLICK BUMEX DEMEROL [Concomitant]
  6. ASPRIN [Concomitant]
     Active Substance: ASPIRIN
  7. POTASSIUM CHLORIDE. [Concomitant]
     Active Substance: POTASSIUM CHLORIDE
  8. LIDOCAINE. [Concomitant]
     Active Substance: LIDOCAINE

REACTIONS (5)
  - Cough [None]
  - Blood potassium decreased [None]
  - Blood glucose decreased [None]
  - Weight increased [None]
  - Acute respiratory distress syndrome [None]

NARRATIVE: CASE EVENT DATE: 20160512
